FAERS Safety Report 24323550 (Version 1)
Quarter: 2024Q3

REPORT INFORMATION
  Report Type: Report from Study
  Country: CA (occurrence: CA)
  Receive Date: 20240916
  Receipt Date: 20240916
  Transmission Date: 20241017
  Serious: Yes (Other)
  Sender: GLAXOSMITHKLINE
  Company Number: CA-GLAXOSMITHKLINE-CA2023AMR079899

PATIENT

DRUGS (2)
  1. BELIMUMAB [Suspect]
     Active Substance: BELIMUMAB
     Indication: Systemic lupus erythematosus
     Dosage: 200 MG, WE
     Route: 058
     Dates: start: 20170509
  2. BELIMUMAB [Suspect]
     Active Substance: BELIMUMAB
     Indication: Systemic lupus erythematosus
     Dosage: UNK

REACTIONS (8)
  - Hip surgery [Recovering/Resolving]
  - Fatigue [Unknown]
  - Pain [Unknown]
  - Mobility decreased [Unknown]
  - Arthralgia [Not Recovered/Not Resolved]
  - Product dose omission issue [Unknown]
  - Off label use [Recovered/Resolved]
  - Intentional dose omission [Unknown]

NARRATIVE: CASE EVENT DATE: 20240701
